FAERS Safety Report 7593710-9 (Version None)
Quarter: 2011Q3

REPORT INFORMATION
  Report Type: 
  Country: None (occurrence: None)
  Receive Date: 20110706
  Receipt Date: 20110622
  Transmission Date: 20111222
  Serious: Yes (Other)
  Sender: FDA-Public Use
  Company Number: PHHY2011CA55545

PATIENT
  Sex: Female

DRUGS (1)
  1. AFINITOR [Suspect]
     Indication: PANCREATIC NEUROENDOCRINE TUMOUR
     Dosage: 10 MG, DAILY
     Route: 048
     Dates: start: 20110616, end: 20110628

REACTIONS (4)
  - NAUSEA [None]
  - PLATELET COUNT DECREASED [None]
  - DRY MOUTH [None]
  - OROPHARYNGEAL BLISTERING [None]
